FAERS Safety Report 9746421 (Version 1)
Quarter: 2013Q4

REPORT INFORMATION
  Report Type: Spontaneous
  Country: TR (occurrence: TR)
  Receive Date: 20131211
  Receipt Date: 20131211
  Transmission Date: 20140711
  Serious: Yes (Other)
  Sender: FDA-Public Use
  Company Number: TR-GLAXOSMITHKLINE-B0951841A

PATIENT
  Sex: Male

DRUGS (1)
  1. REQUIP XL [Suspect]
     Indication: PARKINSON^S DISEASE
     Dosage: 6MG PER DAY
     Route: 048
     Dates: start: 2013, end: 2013

REACTIONS (2)
  - Angina unstable [Recovered/Resolved]
  - Chest pain [Recovered/Resolved]
